FAERS Safety Report 25727512 (Version 1)
Quarter: 2025Q3

REPORT INFORMATION
  Report Type: Spontaneous
  Country: US (occurrence: None)
  Receive Date: 20250825
  Receipt Date: 20250825
  Transmission Date: 20251021
  Serious: Yes (Hospitalization)
  Sender: FDA-CTU
  Company Number: None

PATIENT

DRUGS (1)
  1. METOPROLOL [Suspect]
     Active Substance: METOPROLOL

REACTIONS (4)
  - Hyperkalaemia [None]
  - Blood creatine increased [None]
  - Blood urea [None]
  - Hypertransaminasaemia [None]

NARRATIVE: CASE EVENT DATE: 20220214
